FAERS Safety Report 10041052 (Version 1)
Quarter: 2014Q1

REPORT INFORMATION
  Report Type: Spontaneous
  Country: FR (occurrence: FR)
  Receive Date: 20140327
  Receipt Date: 20140327
  Transmission Date: 20141002
  Serious: Yes (Hospitalization)
  Sender: FDA-Public Use
  Company Number: FR-SA-2014SA034137

PATIENT
  Age: 62 Year
  Sex: Female

DRUGS (5)
  1. PLAVIX [Suspect]
     Indication: CARDIOVASCULAR EVENT PROPHYLAXIS
     Route: 048
     Dates: end: 20140130
  2. SEROPLEX [Suspect]
     Indication: PRODUCT USED FOR UNKNOWN INDICATION
     Dosage: STRENGTH:10 MG SCORED
     Route: 048
  3. STAGID [Concomitant]
  4. TAHOR [Concomitant]
  5. DIAMICRON [Concomitant]

REACTIONS (1)
  - Meningorrhagia [Recovered/Resolved]
